FAERS Safety Report 7077347-6 (Version None)
Quarter: 2010Q4

REPORT INFORMATION
  Report Type: 
  Country: None (occurrence: None)
  Receive Date: 20101022
  Receipt Date: 20101014
  Transmission Date: 20110411
  Serious: Yes (Other)
  Sender: FDA-Public Use
  Company Number: 2010SP055234

PATIENT
  Age: 50 Year
  Sex: Female
  Weight: 64.4108 kg

DRUGS (1)
  1. IMPLANON [Suspect]
     Indication: CONTRACEPTION
     Dates: start: 20100708

REACTIONS (3)
  - CONTUSION [None]
  - FEELING ABNORMAL [None]
  - MENORRHAGIA [None]
